FAERS Safety Report 8049824-2 (Version None)
Quarter: 2012Q1

REPORT INFORMATION
  Report Type: 
  Country: None (occurrence: None)
  Receive Date: 20120111
  Receipt Date: 20120105
  Transmission Date: 20120608
  Serious: Yes (Death)
  Sender: FDA-Public Use
  Company Number: ACO_28734_2012

PATIENT
  Age: 58 Year
  Sex: Female

DRUGS (4)
  1. CORTICOSTEROID NOS (CORTICOSTEROID NOS) [Concomitant]
  2. BACLOFEN [Concomitant]
  3. AMPYRA [Suspect]
     Indication: MULTIPLE SCLEROSIS
     Dosage: 10 MG, BID, ORAL
     Route: 048
     Dates: start: 20100831, end: 20111201
  4. BETASERON [Concomitant]

REACTIONS (1)
  - DEATH [None]
